FAERS Safety Report 23247240 (Version 3)
Quarter: 2025Q1

REPORT INFORMATION
  Report Type: Report from Study
  Country: CA (occurrence: CA)
  Receive Date: 20231130
  Receipt Date: 20250327
  Transmission Date: 20250409
  Serious: Yes (Other)
  Sender: JOHNSON AND JOHNSON
  Company Number: CA-JNJFOC-20231170547

PATIENT
  Sex: Female

DRUGS (2)
  1. REMICADE [Suspect]
     Active Substance: INFLIXIMAB
     Indication: Colitis ulcerative
     Route: 041
     Dates: start: 20100511
  2. REMICADE [Suspect]
     Active Substance: INFLIXIMAB
     Indication: Osteoporosis
     Route: 041

REACTIONS (2)
  - Squamous cell carcinoma [Recovering/Resolving]
  - Oral disorder [Unknown]
